FAERS Safety Report 10737659 (Version 1)
Quarter: 2015Q1

REPORT INFORMATION
  Report Type: Spontaneous
  Country: US (occurrence: None)
  Receive Date: 20150122
  Receipt Date: 20150122
  Transmission Date: 20150721
  Serious: Yes (Other)
  Sender: FDA-Public Use
  Company Number: TPU2015-00014

PATIENT
  Age: 74 Year
  Sex: Female

DRUGS (2)
  1. LIDOCAINE PATCH [Suspect]
     Active Substance: LIDOCAINE
     Indication: INTERVERTEBRAL DISC DEGENERATION
     Route: 061
     Dates: end: 2014
  2. LIDODERM [Suspect]
     Active Substance: LIDOCAINE
     Indication: INTERVERTEBRAL DISC DEGENERATION
     Route: 061
     Dates: end: 2014

REACTIONS (4)
  - Product substitution issue [None]
  - Drug ineffective [None]
  - Product adhesion issue [None]
  - Renal disorder [None]
